FAERS Safety Report 8238746-X (Version None)
Quarter: 2012Q1

REPORT INFORMATION
  Report Type: 
  Country: None (occurrence: None)
  Receive Date: 20120327
  Receipt Date: 20120320
  Transmission Date: 20120608
  Serious: Yes (Other)
  Sender: FDA-Public Use
  Company Number: US-JNJFOC-20120212930

PATIENT
  Age: 73 Year
  Sex: Female

DRUGS (7)
  1. STELARA [Suspect]
     Indication: PSORIASIS
     Route: 058
     Dates: start: 20120103
  2. STELARA [Suspect]
     Route: 058
     Dates: start: 20110629
  3. STELARA [Suspect]
     Route: 058
     Dates: start: 20110510
  4. STELARA [Suspect]
     Route: 058
     Dates: start: 20110927
  5. STELARA [Suspect]
     Route: 058
     Dates: start: 20110330
  6. STELARA [Suspect]
     Route: 058
     Dates: start: 20110222
  7. CEPHALEXIN [Concomitant]
     Indication: IMPETIGO
     Route: 065

REACTIONS (2)
  - SQUAMOUS CELL CARCINOMA [None]
  - ACTINIC KERATOSIS [None]
